FAERS Safety Report 8042451-2 (Version None)
Quarter: 2012Q1

REPORT INFORMATION
  Report Type: 
  Country: None (occurrence: None)
  Receive Date: 20120112
  Receipt Date: 20111228
  Transmission Date: 20120608
  Serious: Yes (Death)
  Sender: FDA-Public Use
  Company Number: US-UCBSA-048826

PATIENT
  Age: 59 Year
  Sex: Female

DRUGS (5)
  1. CLOZAPINE [Suspect]
     Route: 048
  2. LITHIUM CARBONATE [Suspect]
     Route: 048
  3. LORAZEPAM [Suspect]
     Route: 048
  4. OMEPRAZOLE [Suspect]
     Route: 048
  5. ACETAMINOPHEN [Suspect]
     Route: 048

REACTIONS (3)
  - CARDIAC ARREST [None]
  - RESPIRATORY ARREST [None]
  - COMPLETED SUICIDE [None]
